FAERS Safety Report 21456961 (Version 3)
Quarter: 2023Q1

REPORT INFORMATION
  Report Type: Report from Study
  Country: US (occurrence: US)
  Receive Date: 20221014
  Receipt Date: 20230329
  Transmission Date: 20230418
  Serious: No
  Sender: FDA-Public Use
  Company Number: US-ABBVIE-4141979

PATIENT
  Age: 61 Year
  Sex: Female

DRUGS (3)
  1. SKYRIZI [Suspect]
     Active Substance: RISANKIZUMAB-RZAA
     Indication: Psoriasis
     Dosage: 150MG/ML AT WEEK 0 THEN WEEK 4, EVERY 12 WEEKS THEREAFTER
     Route: 058
     Dates: start: 20220922
  2. SKYRIZI [Suspect]
     Active Substance: RISANKIZUMAB-RZAA
     Route: 058
     Dates: start: 20220922
  3. SKYRIZI [Suspect]
     Active Substance: RISANKIZUMAB-RZAA
     Route: 058
     Dates: start: 20220922

REACTIONS (12)
  - Pain [Unknown]
  - Chills [Unknown]
  - Feeling hot [Recovered/Resolved]
  - Pain [Unknown]
  - Erythema [Unknown]
  - Pruritus [Unknown]
  - Nasopharyngitis [Unknown]
  - Drug ineffective [Unknown]
  - Skin burning sensation [Unknown]
  - Fatigue [Recovered/Resolved]
  - Scratch [Unknown]
  - Flushing [Recovered/Resolved]

NARRATIVE: CASE EVENT DATE: 20220901
